FAERS Safety Report 20866278 (Version 2)
Quarter: 2022Q3

REPORT INFORMATION
  Report Type: Spontaneous
  Country: US (occurrence: US)
  Receive Date: 20220524
  Receipt Date: 20220808
  Transmission Date: 20221027
  Serious: No
  Sender: FDA-Public Use
  Company Number: US-BRISTOL-MYERS SQUIBB COMPANY-2022-030921

PATIENT
  Age: 88 Year
  Sex: Female
  Weight: 63.502 kg

DRUGS (1)
  1. REVLIMID [Suspect]
     Active Substance: LENALIDOMIDE
     Indication: Plasma cell myeloma
     Route: 048
     Dates: start: 20210901

REACTIONS (3)
  - Joint swelling [Unknown]
  - Sinus congestion [Unknown]
  - Hypoacusis [Unknown]
